FAERS Safety Report 10025454 (Version 1)
Quarter: 2014Q1

REPORT INFORMATION
  Report Type: Spontaneous
  Country: JP (occurrence: JP)
  Receive Date: 20140320
  Receipt Date: 20140320
  Transmission Date: 20141002
  Serious: Yes (Other)
  Sender: FDA-Public Use
  Company Number: JP-JNJFOC-20140309461

PATIENT
  Sex: 0

DRUGS (1)
  1. INFLIXIMAB, RECOMBINANT [Suspect]
     Indication: STILL^S DISEASE ADULT ONSET
     Route: 042

REACTIONS (4)
  - Infusion related reaction [Unknown]
  - Adverse event [Unknown]
  - Off label use [Unknown]
  - Treatment failure [Unknown]
